FAERS Safety Report 25104990 (Version 1)
Quarter: 2025Q1

REPORT INFORMATION
  Report Type: Spontaneous
  Country: US (occurrence: None)
  Receive Date: 20250320
  Receipt Date: 20250320
  Transmission Date: 20250408
  Serious: Yes (Hospitalization)
  Sender: FDA-CTU
  Company Number: None

PATIENT
  Age: 71 Year
  Sex: Male

DRUGS (1)
  1. APIXABAN [Suspect]
     Active Substance: APIXABAN
     Indication: Pulmonary embolism

REACTIONS (5)
  - Fall [None]
  - Haematemesis [None]
  - Gastric ulcer haemorrhage [None]
  - Red blood cell transfusion [None]
  - Therapy interrupted [None]

NARRATIVE: CASE EVENT DATE: 20250216
